FAERS Safety Report 7431798-6 (Version None)
Quarter: 2011Q2

REPORT INFORMATION
  Report Type: 
  Country: None (occurrence: None)
  Receive Date: 20110418
  Receipt Date: 20110418
  Transmission Date: 20111010
  Serious: Yes (Other)
  Sender: FDA-Public Use
  Company Number: None

PATIENT
  Age: 3 Year
  Sex: Female
  Weight: 12.7007 kg

DRUGS (2)
  1. ACETAMINOPHEN CODEINE ELIXIR DON'T KNOW WYETH [Suspect]
     Indication: HERNIA REPAIR
     Dosage: ONE TEASPOONFUL EVERY 4 HOURS PO
     Route: 048
     Dates: start: 20110414, end: 20110416
  2. ACETAMINOPHEN CODEINE ELIXIR DON'T KNOW WYETH [Suspect]
     Indication: PROCEDURAL PAIN
     Dosage: ONE TEASPOONFUL EVERY 4 HOURS PO
     Route: 048
     Dates: start: 20110414, end: 20110416

REACTIONS (2)
  - HALLUCINATION, VISUAL [None]
  - ASTHENIA [None]
